FAERS Safety Report 4501881-3 (Version None)
Quarter: 2004Q4

REPORT INFORMATION
  Report Type: 
  Country: None (occurrence: None)
  Receive Date: 20041109
  Receipt Date: 20041028
  Transmission Date: 20050328
  Serious: Yes (Hospitalization)
  Sender: FDA-Public Use
  Company Number: 2004242083SE

PATIENT
  Age: 48 Year
  Sex: Female
  Weight: 60 kg

DRUGS (4)
  1. GENOTROPIN [Suspect]
     Indication: HYPOPITUITARISM
     Dosage: 1.2 MG, QD
     Dates: start: 19980602
  2. MERCILON (ETHINYLESTRADIOL, DESOGESTREL) [Suspect]
     Dosage: QD, ORAL
     Route: 048
     Dates: start: 19971211
  3. LEVOTHYROXINE SODIUM [Concomitant]
  4. HYDROCORTISONE [Concomitant]

REACTIONS (4)
  - HEMIANOPIA [None]
  - NEOPLASM PROGRESSION [None]
  - NEOPLASM RECURRENCE [None]
  - PITUITARY TUMOUR BENIGN [None]
